FAERS Safety Report 4378089-8 (Version None)
Quarter: 2004Q2

REPORT INFORMATION
  Report Type: 
  Country: None (occurrence: None)
  Receive Date: 20040609
  Receipt Date: 20040527
  Transmission Date: 20050107
  Serious: Yes (Hospitalization)
  Sender: FDA-Public Use
  Company Number: 200410354BNE

PATIENT
  Age: 67 Year
  Sex: Female

DRUGS (5)
  1. ASPIRIN [Suspect]
     Indication: PROPHYLAXIS
     Dosage: 75 MG, TOTAL DAILY, ORAL
     Route: 048
     Dates: start: 20030101, end: 20040430
  2. KETOPROFEN [Suspect]
     Indication: ARTHRITIS
     Dosage: 200 MG, TOTAL DAILY, ORAL
     Route: 048
     Dates: start: 20030101, end: 20040430
  3. RAMIPRIL [Concomitant]
  4. BENDROFLUAZIDE [Concomitant]
  5. LOSARTAN POTASSIUM [Concomitant]

REACTIONS (3)
  - DYSPNOEA [None]
  - GASTRIC ULCER [None]
  - MELAENA [None]
